FAERS Safety Report 8480387-3 (Version None)
Quarter: 2012Q3

REPORT INFORMATION
  Report Type: 
  Country: None (occurrence: None)
  Receive Date: 20120702
  Receipt Date: 20120627
  Transmission Date: 20120928
  Serious: Yes (Other)
  Sender: FDA-Public Use
  Company Number: FR-ROCHE-1071876

PATIENT
  Age: 25 Year
  Sex: Female
  Weight: 50 kg

DRUGS (3)
  1. ENBREL [Concomitant]
  2. ACTEMRA [Suspect]
     Dates: start: 20120416
  3. ACTEMRA [Suspect]
     Indication: RHEUMATOID ARTHRITIS
     Route: 042
     Dates: start: 20111121

REACTIONS (4)
  - HAEMOLYSIS [None]
  - OCULAR ICTERUS [None]
  - BLOOD BILIRUBIN INCREASED [None]
  - ABDOMINAL PAIN [None]
